FAERS Safety Report 15404841 (Version 3)
Quarter: 2018Q4

REPORT INFORMATION
  Report Type: Report from Study
  Country: None (occurrence: AR)
  Receive Date: 20180919
  Receipt Date: 20181109
  Transmission Date: 20190204
  Serious: Yes (Other)
  Sender: FDA-Public Use
  Company Number: AR-ABBVIE-18K-007-2457043-00

PATIENT
  Age: 71 Year
  Sex: Female

DRUGS (3)
  1. PREGABALIN. [Concomitant]
     Active Substance: PREGABALIN
     Indication: PRODUCT USED FOR UNKNOWN INDICATION
  2. METHADONE [Concomitant]
     Active Substance: METHADONE HYDROCHLORIDE
     Indication: PRODUCT USED FOR UNKNOWN INDICATION
     Dosage: DISCONTINUED DUE TO SURGERY
  3. HUMIRA [Suspect]
     Active Substance: ADALIMUMAB
     Indication: ANKYLOSING SPONDYLITIS
     Route: 058
     Dates: start: 20171018

REACTIONS (10)
  - Pathological fracture [Recovering/Resolving]
  - Kidney small [Unknown]
  - Calcium deficiency [Not Recovered/Not Resolved]
  - Bone erosion [Not Recovered/Not Resolved]
  - Diarrhoea [Recovered/Resolved]
  - Agitation [Unknown]
  - Food intolerance [Recovered/Resolved]
  - Renal failure [Unknown]
  - Anaemia [Unknown]
  - Diarrhoea [Recovered/Resolved]

NARRATIVE: CASE EVENT DATE: 2018
